FAERS Safety Report 8083033-6 (Version None)
Quarter: 2012Q1

REPORT INFORMATION
  Report Type: 
  Country: None (occurrence: None)
  Receive Date: 20120127
  Receipt Date: 20110302
  Transmission Date: 20120608
  Serious: No
  Sender: FDA-Public Use
  Company Number: US-ABBOTT-11P-163-0708547-00

PATIENT
  Age: 36 Year
  Sex: Female

DRUGS (7)
  1. HUMIRA [Suspect]
     Indication: ANKYLOSING SPONDYLITIS
     Dates: start: 20110215
  2. NEXIUM [Concomitant]
     Indication: PRODUCT USED FOR UNKNOWN INDICATION
  3. AMBIEN CR [Concomitant]
     Indication: PRODUCT USED FOR UNKNOWN INDICATION
  4. NORCO [Concomitant]
     Indication: PRODUCT USED FOR UNKNOWN INDICATION
     Dosage: 10/325
  5. SOMA [Concomitant]
     Indication: PRODUCT USED FOR UNKNOWN INDICATION
  6. IBUPROFEN [Concomitant]
     Indication: PRODUCT USED FOR UNKNOWN INDICATION
  7. BIRTH CONTROL [Concomitant]
     Indication: PRODUCT USED FOR UNKNOWN INDICATION

REACTIONS (5)
  - THROAT IRRITATION [None]
  - FATIGUE [None]
  - NAUSEA [None]
  - ERYTHEMA [None]
  - PARAESTHESIA ORAL [None]
